FAERS Safety Report 16644329 (Version 1)
Quarter: 2019Q3

REPORT INFORMATION
  Report Type: Spontaneous
  Country: GB (occurrence: GB)
  Receive Date: 20190729
  Receipt Date: 20190729
  Transmission Date: 20191004
  Serious: Yes (Other)
  Sender: FDA-Public Use
  Company Number: PHHY2019GB174540

PATIENT
  Sex: Female

DRUGS (1)
  1. LISINOPRIL. [Suspect]
     Active Substance: LISINOPRIL
     Indication: PROTEINURIA
     Dosage: 5 MG, UNK
     Route: 048

REACTIONS (1)
  - Gingival hypertrophy [Not Recovered/Not Resolved]

NARRATIVE: CASE EVENT DATE: 20181108
